FAERS Safety Report 17160901 (Version 5)
Quarter: 2020Q1

REPORT INFORMATION
  Report Type: Spontaneous
  Country: JP (occurrence: JP)
  Receive Date: 20191216
  Receipt Date: 20200121
  Transmission Date: 20200409
  Serious: Yes (Life-Threatening, Hospitalization, Other)
  Sender: FDA-Public Use
  Company Number: JP-PFIZER INC-2019540313

PATIENT
  Age: 84 Year
  Sex: Female

DRUGS (6)
  1. CELECOX [Suspect]
     Active Substance: CELECOXIB
     Indication: OSTEOARTHRITIS
     Dosage: 200 MG, 1X/DAY
     Route: 048
  2. MOHRUS L [Concomitant]
     Active Substance: KETOPROFEN
     Indication: LUMBAR SPINAL STENOSIS
     Dosage: 40 MG, 1X/DAY
     Route: 050
     Dates: start: 20190906
  3. EVENITY [Suspect]
     Active Substance: ROMOSOZUMAB-AQQG
     Indication: OSTEOPOROSIS
     Dosage: 210 MG, MONTHLY
     Route: 058
     Dates: start: 20190401, end: 20191031
  4. CELECOX [Suspect]
     Active Substance: CELECOXIB
     Indication: LUMBAR SPINAL STENOSIS
     Dosage: 100 MG, CYCLIC (ONCE EVERY 12 HOURS)
     Route: 048
     Dates: start: 20190906
  5. FAMOTIDINE OD ME [Concomitant]
     Indication: GASTRITIS
     Dosage: 10 MG, UNK
     Route: 048
     Dates: start: 20190906
  6. ASPARA-CA [Concomitant]
     Active Substance: CALCIUM ASPARTATE
     Indication: OSTEOPOROSIS
     Dosage: 400 MG, UNK
     Route: 048
     Dates: start: 20190917

REACTIONS (1)
  - Cerebral haemorrhage [Recovering/Resolving]

NARRATIVE: CASE EVENT DATE: 20191031
